FAERS Safety Report 21437147 (Version 1)
Quarter: 2022Q4

REPORT INFORMATION
  Report Type: Spontaneous
  Country: PT (occurrence: None)
  Receive Date: 20221010
  Receipt Date: 20221010
  Transmission Date: 20230113
  Serious: Yes (Other)
  Sender: FDA-Public Use
  Company Number: PT-ROCHE-3194354

PATIENT
  Age: 49 Year
  Sex: Male

DRUGS (1)
  1. ALECTINIB [Suspect]
     Active Substance: ALECTINIB
     Indication: Product used for unknown indication
     Route: 065
     Dates: start: 201710

REACTIONS (6)
  - Skeletal injury [Unknown]
  - Brain injury [Unknown]
  - Headache [Unknown]
  - Asthenia [Unknown]
  - Jaundice [Unknown]
  - Transaminases increased [Unknown]
